FAERS Safety Report 6693403-6 (Version None)
Quarter: 2010Q2

REPORT INFORMATION
  Report Type: 
  Country: None (occurrence: None)
  Receive Date: 20100420
  Receipt Date: 20100405
  Transmission Date: 20101027
  Serious: Yes (Death, Life-Threatening, Hospitalization)
  Sender: FDA-Public Use
  Company Number: 2010001205

PATIENT
  Age: 68 Year
  Sex: Male

DRUGS (4)
  1. ERLOTINIB (ERLOTINIB) (TABLET) (ERLOTINIB) [Suspect]
     Indication: PANCREATIC CARCINOMA METASTATIC
     Dosage: (100 MG,QD), ORAL
     Route: 048
     Dates: start: 20090422, end: 20100317
  2. GEMCITABINE [Suspect]
     Indication: PANCREATIC CARCINOMA METASTATIC
     Dosage: (1000 MG, QW), INTRAVENOUS
     Route: 042
     Dates: start: 20090422, end: 20100318
  3. BENDROFLUMETHIAZIDE (BENDROFLUMETHIAZIDE) [Concomitant]
  4. TETRACYCLINE [Concomitant]

REACTIONS (9)
  - BLOOD PRESSURE SYSTOLIC INCREASED [None]
  - DIZZINESS [None]
  - DYSPNOEA [None]
  - FATIGUE [None]
  - HAEMATEMESIS [None]
  - HAEMOGLOBIN DECREASED [None]
  - HYPERHIDROSIS [None]
  - MELAENA [None]
  - RECTAL HAEMORRHAGE [None]
